FAERS Safety Report 16196924 (Version 1)
Quarter: 2019Q2

REPORT INFORMATION
  Report Type: Spontaneous
  Country: BR (occurrence: BR)
  Receive Date: 20190415
  Receipt Date: 20190415
  Transmission Date: 20190711
  Serious: Yes (Hospitalization, Other)
  Sender: FDA-Public Use
  Company Number: BR-NOVOPROD-656854

PATIENT
  Sex: Female
  Weight: 44 kg

DRUGS (11)
  1. OSTEOBAN [Concomitant]
     Indication: OSTEOPOROSIS
     Dosage: UNK
     Route: 065
  2. TRESIBA [Suspect]
     Active Substance: INSULIN DEGLUDEC
     Indication: TYPE 2 DIABETES MELLITUS
     Dosage: 10 IU
     Route: 065
     Dates: start: 201810
  3. RABEPRAZOL                         /01417201/ [Concomitant]
     Indication: GASTRITIS
     Dosage: UNK
     Route: 065
  4. LOSARTAN. [Concomitant]
     Active Substance: LOSARTAN
     Indication: HYPERTENSION
     Dosage: UNK
     Route: 065
  5. CLOPIDOGREL BISULFATE. [Concomitant]
     Active Substance: CLOPIDOGREL BISULFATE
     Indication: ANGIOPATHY
     Dosage: UNK
     Route: 065
  6. PURAN [Concomitant]
     Active Substance: LEVOTHYROXINE SODIUM
     Indication: THYROID DISORDER
     Dosage: UNK
     Route: 065
  7. TRESIBA [Suspect]
     Active Substance: INSULIN DEGLUDEC
     Dosage: 12 IU
     Route: 065
     Dates: start: 20190401
  8. EXFORGE [Concomitant]
     Active Substance: AMLODIPINE BESYLATE\VALSARTAN
     Indication: HYPERTENSION
     Dosage: UNK
     Route: 065
  9. TRAYENTA [Concomitant]
     Active Substance: LINAGLIPTIN
     Indication: TYPE 2 DIABETES MELLITUS
     Dosage: UNK
     Route: 065
  10. AAS PROTECT [Concomitant]
     Active Substance: ASPIRIN
     Indication: ANGIOPATHY
     Dosage: UNK
     Route: 065
  11. ROSUVASTATIN. [Concomitant]
     Active Substance: ROSUVASTATIN
     Indication: BLOOD CHOLESTEROL INCREASED
     Dosage: UNK
     Route: 065

REACTIONS (4)
  - Hyperglycaemia [Unknown]
  - Blood glucose abnormal [Not Recovered/Not Resolved]
  - Bone prosthesis insertion [Not Recovered/Not Resolved]
  - Glycosylated haemoglobin increased [Unknown]
